FAERS Safety Report 18980145 (Version 1)
Quarter: 2021Q1

REPORT INFORMATION
  Report Type: Spontaneous
  Country: US (occurrence: US)
  Receive Date: 20210306
  Receipt Date: 20210306
  Transmission Date: 20210420
  Serious: Yes (Other)
  Sender: FDA-Public Use
  Company Number: None

PATIENT
  Age: 83 Year
  Sex: Female
  Weight: 72 kg

DRUGS (3)
  1. ATORVASTATIN 10 MG [Suspect]
     Active Substance: ATORVASTATIN
  2. METOPROLOL SUCCINATE ER 25 MG [Suspect]
     Active Substance: METOPROLOL SUCCINATE
  3. IRBESARTAN 75 MG [Suspect]
     Active Substance: IRBESARTAN
     Indication: BLOOD PRESSURE MEASUREMENT
     Dosage: ?          QUANTITY:1 TABLET(S);?
     Route: 048

REACTIONS (3)
  - Balance disorder [None]
  - Visual impairment [None]
  - Product appearance confusion [None]

NARRATIVE: CASE EVENT DATE: 20210306
